FAERS Safety Report 22518617 (Version 3)
Quarter: 2024Q2

REPORT INFORMATION
  Report Type: Other
  Country: US (occurrence: None)
  Receive Date: 20230605
  Receipt Date: 20240509
  Transmission Date: 20240716
  Serious: No
  Sender: FDA-Public Use
  Company Number: US-ROCHE-1923012

PATIENT
  Age: 41 Year
  Sex: Male
  Weight: 103.51 kg

DRUGS (9)
  1. RITUXAN [Suspect]
     Active Substance: RITUXIMAB
     Indication: Relapsing multiple sclerosis
     Route: 041
     Dates: start: 20170407
  2. RITUXAN [Suspect]
     Active Substance: RITUXIMAB
     Route: 041
     Dates: start: 20161027
  3. OCREVUS [Suspect]
     Active Substance: OCRELIZUMAB
     Indication: Relapsing multiple sclerosis
     Route: 042
  4. BETASERON [Concomitant]
     Active Substance: INTERFERON BETA-1B
  5. COPAXONE [Concomitant]
     Active Substance: GLATIRAMER ACETATE
  6. AVONEX [Concomitant]
     Active Substance: INTERFERON BETA-1A
  7. TYSABRI [Concomitant]
     Active Substance: NATALIZUMAB
  8. TECFIDERA [Concomitant]
     Active Substance: DIMETHYL FUMARATE
  9. BENADRYL [Concomitant]
     Active Substance: DIPHENHYDRAMINE HYDROCHLORIDE

REACTIONS (16)
  - Off label use [Unknown]
  - Visual acuity reduced [Not Recovered/Not Resolved]
  - Urticaria [Recovered/Resolved]
  - Pruritus [Recovered/Resolved]
  - Dyspnoea [Recovered/Resolved]
  - Haematochezia [Unknown]
  - Confusional state [Unknown]
  - Nausea [Unknown]
  - Blood pressure decreased [Unknown]
  - COVID-19 [Unknown]
  - Dizziness [Unknown]
  - Heart rate increased [Recovered/Resolved]
  - Abdominal pain upper [Recovered/Resolved]
  - Vertigo [Unknown]
  - Fall [Unknown]
  - Tremor [Recovered/Resolved]

NARRATIVE: CASE EVENT DATE: 20161027
